FAERS Safety Report 8862762 (Version 2)
Quarter: 2014Q3

REPORT INFORMATION
  Report Type: Spontaneous
  Country: ES (occurrence: ES)
  Receive Date: 20121026
  Receipt Date: 20140807
  Transmission Date: 20150326
  Serious: Yes (Death, Other)
  Sender: FDA-Public Use
  Company Number: ES-JNJFOC-20121008564

PATIENT
  Sex: Female

DRUGS (3)
  1. DOXORUBICIN HYDROCHLORIDE. [Suspect]
     Active Substance: DOXORUBICIN HYDROCHLORIDE
     Indication: OVARIAN CANCER STAGE IV
     Dosage: 50 MG/M2 WAS STARTING DOSE. ONE PATIENT WITH OVARIAN CANCER, RECEIVED 30 MG/M2 EVERY 28 DAYS.
     Route: 042
     Dates: start: 2011
  2. DOXORUBICIN HYDROCHLORIDE. [Suspect]
     Active Substance: DOXORUBICIN HYDROCHLORIDE
     Indication: BREAST CANCER METASTATIC
     Dosage: 50 MG/M2 WAS STARTING DOSE. ONE PATIENT WITH OVARIAN CANCER, RECEIVED 30 MG/M2 EVERY 28 DAYS.
     Route: 042
     Dates: start: 2011
  3. CARBOPLATINUM [Concomitant]
     Active Substance: CARBOPLATIN
     Indication: PRODUCT USED FOR UNKNOWN INDICATION
     Dosage: IN 1 PATIENT WHO WAS ON 30 MG/M2 OF DOXORUBIN HYDROCHLORIDE EVERY 28 DAYS FOR OVARIAN CANCER
     Route: 065

REACTIONS (13)
  - Alopecia [Unknown]
  - Drug ineffective [Unknown]
  - Neurotoxicity [Unknown]
  - Skin toxicity [Unknown]
  - Asthenia [Unknown]
  - Vomiting [Unknown]
  - Thrombocytopenia [Unknown]
  - Neutropenia [Unknown]
  - Palmar-plantar erythrodysaesthesia syndrome [Unknown]
  - Death [Fatal]
  - Disease progression [Unknown]
  - Mucosal inflammation [Unknown]
  - Conjunctivitis [Unknown]
